FAERS Safety Report 5701959-2 (Version None)
Quarter: 2008Q2

REPORT INFORMATION
  Report Type: 
  Country: None (occurrence: None)
  Receive Date: 20080411
  Receipt Date: 20070328
  Transmission Date: 20081010
  Serious: No
  Sender: FDA-Public Use
  Company Number: US-ABBOTT-07P-163-0363593-00

PATIENT
  Sex: Male
  Weight: 63.56 kg

DRUGS (4)
  1. DEPAKOTE [Suspect]
     Indication: EPILEPSY
     Route: 048
     Dates: start: 20030101
  2. DEPAKOTE [Suspect]
     Dosage: TWO 500MG EVERY AM, ONE 250MG EVERY PM, TWO 500MG AT BEDTIME
     Route: 048
     Dates: start: 20060101
  3. PHENYTOIN SODIUM [Concomitant]
     Indication: EPILEPSY
     Route: 048
     Dates: start: 19990101
  4. CHO NAG TRIS [Concomitant]
     Indication: ARTHRITIS
     Route: 048
     Dates: start: 19990101

REACTIONS (1)
  - CONVULSION [None]
